FAERS Safety Report 12372944 (Version 2)
Quarter: 2016Q3

REPORT INFORMATION
  Report Type: Report from Study
  Country: US (occurrence: US)
  Receive Date: 20160516
  Receipt Date: 20160805
  Transmission Date: 20161109
  Serious: Yes (Other)
  Sender: FDA-Public Use
  Company Number: US-JAZZ-2016-US-008520

PATIENT
  Age: 63 Year
  Sex: Male

DRUGS (19)
  1. CLOZAPINE ODT [Suspect]
     Active Substance: CLOZAPINE
     Dosage: DOSE VARIANCE 125-200 MG
     Route: 048
     Dates: start: 20140114, end: 20140520
  2. CLOZAPINE ODT [Suspect]
     Active Substance: CLOZAPINE
     Dosage: 300 MG, BID
     Route: 048
     Dates: start: 20150429, end: 20160409
  3. HYDROCHLOROTHIAZIDE. [Concomitant]
     Active Substance: HYDROCHLOROTHIAZIDE
  4. RISPERIDONE. [Suspect]
     Active Substance: RISPERIDONE
     Dosage: UNK MG, UNK
     Dates: start: 201604, end: 201606
  5. METFORMIN [Concomitant]
     Active Substance: METFORMIN HYDROCHLORIDE
  6. SIMVASTATIN. [Concomitant]
     Active Substance: SIMVASTATIN
  7. CLOZAPINE ODT [Suspect]
     Active Substance: CLOZAPINE
     Indication: SCHIZOPHRENIA
     Dosage: UNK MG, QD
     Route: 048
     Dates: start: 20131231
  8. DIVALPROEX SODIUM. [Concomitant]
     Active Substance: DIVALPROEX SODIUM
  9. AMLODIPINE [Concomitant]
     Active Substance: AMLODIPINE BESYLATE
  10. METOPROLOL. [Concomitant]
     Active Substance: METOPROLOL
  11. ASPIRIN. [Concomitant]
     Active Substance: ASPIRIN
  12. CLOZAPINE ODT [Suspect]
     Active Substance: CLOZAPINE
     Dosage: UNK MG, QD
     Route: 048
     Dates: start: 20160621
  13. RISPERIDONE. [Suspect]
     Active Substance: RISPERIDONE
     Dosage: UNK MG, UNK
     Dates: end: 201604
  14. HALDOL [Concomitant]
     Active Substance: HALOPERIDOL
  15. COLACE [Concomitant]
     Active Substance: DOCUSATE SODIUM
  16. TAMSULOSIN HCL [Concomitant]
     Active Substance: TAMSULOSIN
  17. VITAMIN D [Concomitant]
     Active Substance: CHOLECALCIFEROL
  18. CLOZAPINE ODT [Suspect]
     Active Substance: CLOZAPINE
     Dosage: 200 MG, BID
     Route: 048
     Dates: start: 20140520, end: 20160429
  19. CLONAZEPAM. [Concomitant]
     Active Substance: CLONAZEPAM

REACTIONS (1)
  - Neutropenia [Recovered/Resolved]

NARRATIVE: CASE EVENT DATE: 20160419
